FAERS Safety Report 7098652-3 (Version None)
Quarter: 2010Q4

REPORT INFORMATION
  Report Type: 
  Country: None (occurrence: None)
  Receive Date: 20101112
  Receipt Date: 20101103
  Transmission Date: 20110411
  Serious: Yes (Hospitalization, Other)
  Sender: FDA-Public Use
  Company Number: US-JNJFOC-20100507176

PATIENT
  Sex: Male
  Weight: 13 kg

DRUGS (3)
  1. CHILDREN'S MOTRIN [Suspect]
     Indication: NASOPHARYNGITIS
     Dosage: ^11 TO 12 DOSES IN 4 DAYS^, ^2 TO 3 TIMES A DAY^
     Route: 048
  2. CHILDREN'S MOTRIN [Suspect]
     Indication: PYREXIA
     Dosage: ^11 TO 12 DOSES IN 4 DAYS^, ^2 TO 3 TIMES A DAY^
     Route: 048
  3. AMOXICILLIN [Concomitant]
     Indication: PHARYNGITIS STREPTOCOCCAL

REACTIONS (15)
  - BLOOD ALBUMIN DECREASED [None]
  - BLOOD CHLORIDE DECREASED [None]
  - BLOOD POTASSIUM DECREASED [None]
  - BLOOD TRIGLYCERIDES INCREASED [None]
  - BLOOD URIC ACID DECREASED [None]
  - CROHN'S DISEASE [None]
  - DUODENAL ULCER PERFORATION [None]
  - EAR INFECTION [None]
  - GASTRINOMA [None]
  - INCISION SITE PAIN [None]
  - LIPASE INCREASED [None]
  - MEAN PLATELET VOLUME DECREASED [None]
  - PNEUMATOSIS INTESTINALIS [None]
  - POSTOPERATIVE ILEUS [None]
  - PRODUCT QUALITY ISSUE [None]
